FAERS Safety Report 9777988 (Version 2)
Quarter: 2014Q2

REPORT INFORMATION
  Report Type: Spontaneous
  Country: JP (occurrence: JP)
  Receive Date: 20131223
  Receipt Date: 20140411
  Transmission Date: 20141212
  Serious: Yes (Death, Other)
  Sender: FDA-Public Use
  Company Number: JP-ROCHE-1320626

PATIENT
  Age: 65 Year
  Sex: Male

DRUGS (9)
  1. AVASTIN [Suspect]
     Indication: COLON CANCER METASTATIC
     Dosage: UNCERTAIN DOSAGE AND THREE COURSES
     Route: 041
     Dates: start: 2010, end: 2010
  2. AVASTIN [Suspect]
     Indication: COLON CANCER
     Dosage: UNCERTAIN DOSAGE AND TWO COURSES
     Route: 041
     Dates: start: 2010
  3. XELODA [Suspect]
     Indication: COLON CANCER METASTATIC
     Dosage: UNCERTAIN DOSAGE AND THREE COURSES
     Route: 048
     Dates: start: 2010, end: 2010
  4. XELODA [Suspect]
     Indication: COLON CANCER
     Dosage: UNCERTAIN DOSAGE AND TWO COURSES
     Route: 048
     Dates: start: 2010
  5. IRINOTECAN HYDROCHLORIDE [Concomitant]
     Indication: COLON CANCER METASTATIC
     Dosage: UNCERTAIN DOSAGE AND THREE COURSES
     Route: 041
     Dates: start: 2010, end: 2010
  6. 5-FU [Concomitant]
     Indication: COLON CANCER METASTATIC
     Dosage: UNCERTAIN DOSAGE AND THREE COURSES
     Route: 041
     Dates: start: 2010, end: 2010
  7. 5-FU [Concomitant]
     Indication: COLON CANCER
     Dosage: UNCERTAIN DOSAGE AND THREE COURSES
     Route: 040
     Dates: start: 2010, end: 2010
  8. CALCIUM LEVOFOLINATE [Concomitant]
     Indication: COLON CANCER METASTATIC
     Dosage: UNCERTAIN DOSAGE AND THREE COURSES
     Route: 041
     Dates: start: 2010, end: 2010
  9. ELPLAT [Concomitant]
     Indication: COLON CANCER METASTATIC
     Route: 041
     Dates: start: 2010, end: 2010

REACTIONS (5)
  - Metastases to lung [Unknown]
  - Metastases to liver [Unknown]
  - Metastases to lymph nodes [Unknown]
  - Neutrophil count decreased [Unknown]
  - Disease progression [Fatal]
